FAERS Safety Report 11167758 (Version 1)
Quarter: 2015Q2

REPORT INFORMATION
  Report Type: Spontaneous
  Country: US (occurrence: None)
  Receive Date: 20150604
  Receipt Date: 20150604
  Transmission Date: 20150821
  Serious: Yes (Life-Threatening, Other)
  Sender: FDA-Public Use
  Company Number: None

PATIENT
  Age: 64 Year
  Sex: Female
  Weight: 58.06 kg

DRUGS (18)
  1. REGLAN [Concomitant]
     Active Substance: METOCLOPRAMIDE HYDROCHLORIDE
  2. HERBAL NOS [Concomitant]
     Active Substance: HERBALS
  3. SUCRALFATE (CARAFATE) [Concomitant]
  4. WELLBUTRON (BRUPROPIAN) [Concomitant]
  5. IBUPROPION [Concomitant]
  6. CALCIUM [Concomitant]
     Active Substance: CALCIUM
  7. VITAMIN E [Concomitant]
     Active Substance: .ALPHA.-TOCOPHEROL
  8. ASTEPRO [Concomitant]
     Active Substance: AZELASTINE HYDROCHLORIDE
  9. NEURONTIN [Concomitant]
     Active Substance: GABAPENTIN
  10. D3 [Concomitant]
     Active Substance: 25-HYDROXYCHOLECALCIFEROL, 5-TRANS-
  11. ESBRIET [Suspect]
     Active Substance: PIRFENIDONE
     Indication: PULMONARY FIBROSIS
     Dosage: WEEK 1, 1 PILL 3XD FOR WEEK, WEEK 2, 2 PILLS 3XD FOR WEEK, WEEK 3, 3XD FOR WEEK, WITH FOOD
     Dates: start: 20150501, end: 20150508
  12. PHENAGAN [Concomitant]
  13. DAILY VITAMIN [Concomitant]
     Active Substance: VITAMINS
  14. SENOKOT-S [Concomitant]
     Active Substance: DOCUSATE SODIUM\SENNOSIDES
  15. SYNTHROID [Concomitant]
     Active Substance: LEVOTHYROXINE SODIUM
  16. OXYGEN. [Concomitant]
     Active Substance: OXYGEN
  17. ODANSETRON [Concomitant]
     Active Substance: ONDANSETRON
  18. VITAMIN B12 [Concomitant]
     Active Substance: CYANOCOBALAMIN

REACTIONS (7)
  - Pulmonary fibrosis [None]
  - Dyspnoea [None]
  - Headache [None]
  - Condition aggravated [None]
  - General physical health deterioration [None]
  - Therapy cessation [None]
  - Cough [None]
